FAERS Safety Report 5928097-8 (Version None)
Quarter: 2008Q4

REPORT INFORMATION
  Report Type: 
  Country: None (occurrence: None)
  Receive Date: 20081023
  Receipt Date: 20081021
  Transmission Date: 20090506
  Serious: Yes (Other)
  Sender: FDA-Public Use
  Company Number: B0542832A

PATIENT
  Age: 56 Year

DRUGS (2)
  1. ARIXTRA [Suspect]
     Indication: DRUG USE FOR UNKNOWN INDICATION
     Route: 065
  2. HEPARIN [Concomitant]

REACTIONS (1)
  - CATHETER THROMBOSIS [None]
